FAERS Safety Report 6531502-X (Version None)
Quarter: 2010Q1

REPORT INFORMATION
  Report Type: 
  Country: None (occurrence: None)
  Receive Date: 20100108
  Receipt Date: 20091228
  Transmission Date: 20100710
  Serious: Yes (Hospitalization)
  Sender: FDA-Public Use
  Company Number: JP-BAYER-200915374BYL

PATIENT
  Age: 51 Year
  Sex: Male

DRUGS (3)
  1. KOGENATE FS [Suspect]
     Indication: FACTOR VIII DEFICIENCY
     Dosage: TOTAL DAILY DOSE: 1000 IU  UNIT DOSE: 1000 IU
     Route: 042
     Dates: start: 20080101
  2. INTERFERON [Suspect]
     Indication: HEPATITIS C
     Route: 065
     Dates: end: 20091218
  3. REBETOL [Suspect]
     Indication: HEPATITIS C
     Route: 048
     Dates: end: 20091222

REACTIONS (2)
  - PYREXIA [None]
  - TOXIC SKIN ERUPTION [None]
